FAERS Safety Report 20786328 (Version 1)
Quarter: 2022Q2

REPORT INFORMATION
  Report Type: Spontaneous
  Country: US (occurrence: None)
  Receive Date: 20220504
  Receipt Date: 20220504
  Transmission Date: 20220721
  Serious: No
  Sender: FDA-Public Use
  Company Number: US-ROCHE-2984089

PATIENT
  Age: 68 Year
  Sex: Female
  Weight: 94.432 kg

DRUGS (2)
  1. OCREVUS [Suspect]
     Active Substance: OCRELIZUMAB
     Indication: Primary progressive multiple sclerosis
     Dosage: FIRST AND SECOND INFUSION SEPARATED BY TWO WEEKS
     Route: 042
     Dates: start: 202107
  2. OCREVUS [Suspect]
     Active Substance: OCRELIZUMAB
     Dosage: FIRST FULL INFUSION
     Route: 065
     Dates: start: 20211217

REACTIONS (1)
  - Injection site oedema [Unknown]

NARRATIVE: CASE EVENT DATE: 20211217
